FAERS Safety Report 7704702-0 (Version None)
Quarter: 2011Q3

REPORT INFORMATION
  Report Type: 
  Country: None (occurrence: None)
  Receive Date: 20110823
  Receipt Date: 20101006
  Transmission Date: 20111222
  Serious: Yes (Other)
  Sender: FDA-Public Use
  Company Number: US-BRISTOL-MYERS SQUIBB COMPANY-14253827

PATIENT
  Age: 69 Year
  Sex: Female

DRUGS (20)
  1. ESTRACE [Suspect]
     Indication: MENOPAUSE
     Dosage: INITIALY TAKEN FROM 1998-1999(1Y) AND AGAIN TAKEN FROM JUN02
     Dates: start: 19980101
  2. ESTRACE [Suspect]
     Indication: HOT FLUSH
     Dosage: INITIALY TAKEN FROM 1998-1999(1Y) AND AGAIN TAKEN FROM JUN02
     Dates: start: 19980101
  3. CLIMARA [Suspect]
     Indication: HORMONE THERAPY
     Dosage: INITIALY TAKEN FROM 1998-99 (1Y) AND AGAIN FROM JUL02.
     Route: 062
     Dates: start: 19980101
  4. PREMARIN [Suspect]
     Indication: NIGHT SWEATS
     Dates: start: 19820101, end: 20020101
  5. PREMPRO [Suspect]
     Indication: HOT FLUSH
     Dosage: 0.625/2.5 MG
     Dates: start: 19990101, end: 20020101
  6. CLIMARA [Suspect]
     Indication: NIGHT SWEATS
     Dosage: INITIALY TAKEN FROM 1998-99 (1Y) AND AGAIN FROM JUL02.
     Route: 062
     Dates: start: 19980101
  7. PREMARIN [Suspect]
     Indication: MENOPAUSE
     Dates: start: 19820101, end: 20020101
  8. PREMPRO [Suspect]
     Indication: MENOPAUSE
     Dosage: 0.625/2.5 MG
     Dates: start: 19990101, end: 20020101
  9. FOSAMAX [Concomitant]
     Indication: OSTEOPOROSIS
  10. HYOSCYAMINE [Concomitant]
     Indication: MUSCLE SPASMS
  11. HYDROCODONE BITARTRATE AND ACETAMINOPHEN [Concomitant]
     Indication: PAIN
  12. CLIMARA [Suspect]
     Indication: HOT FLUSH
     Dosage: INITIALY TAKEN FROM 1998-99 (1Y) AND AGAIN FROM JUL02.
     Route: 062
     Dates: start: 19980101
  13. PROGESTERONE [Suspect]
  14. PREMPRO [Suspect]
     Indication: NIGHT SWEATS
     Dosage: 0.625/2.5 MG
     Dates: start: 19990101, end: 20020101
  15. TRAMADOL HCL [Concomitant]
  16. ESTRACE [Suspect]
     Indication: HORMONE THERAPY
     Dosage: INITIALY TAKEN FROM 1998-1999(1Y) AND AGAIN TAKEN FROM JUN02
     Dates: start: 19980101
  17. ESTRACE [Suspect]
     Indication: NIGHT SWEATS
     Dosage: INITIALY TAKEN FROM 1998-1999(1Y) AND AGAIN TAKEN FROM JUN02
     Dates: start: 19980101
  18. CLIMARA [Suspect]
     Indication: MENOPAUSE
     Dosage: INITIALY TAKEN FROM 1998-99 (1Y) AND AGAIN FROM JUL02.
     Route: 062
     Dates: start: 19980101
  19. PREMARIN [Suspect]
     Indication: HOT FLUSH
     Dates: start: 19820101, end: 20020101
  20. CONTRACEPTIVE [Concomitant]
     Route: 048

REACTIONS (1)
  - BREAST CANCER [None]
